FAERS Safety Report 5155872-2 (Version None)
Quarter: 2006Q4

REPORT INFORMATION
  Report Type: 
  Country: None (occurrence: None)
  Receive Date: 20061114
  Receipt Date: 20061031
  Transmission Date: 20070319
  Serious: Yes (Hospitalization, Other)
  Sender: FDA-Public Use
  Company Number: 2006136705

PATIENT

DRUGS (1)
  1. FELDENE [Suspect]
     Dosage: 80 MG (20 MG, 4 IN 1 D)

REACTIONS (1)
  - HOSPITALISATION [None]
